FAERS Safety Report 9238231 (Version 1)
Quarter: 2013Q1

REPORT INFORMATION
  Report Type: Spontaneous
  Country: US (occurrence: None)
  Receive Date: 20121107
  Receipt Date: 20121107
  Transmission Date: 20140127
  Serious: Yes (Other)
  Sender: FDA-Public Use
  Company Number: E2B_00000298

PATIENT
  Age: 72 Year
  Sex: Female
  Weight: 95.26 kg

DRUGS (5)
  1. LISINOPRIL [Suspect]
     Indication: HYPERTENSION
     Route: 048
     Dates: start: 20120628, end: 20120629
  2. VERAPAMIL (UNKNOWN) [Concomitant]
  3. LEVOTHYROXINE (UNKNOWN) [Concomitant]
  4. TRIAMTERENE-HYDROCHLOROTHIAZIDE (UNKNOWN) [Concomitant]
  5. PRAVASTATIN (UNKNOWN) [Concomitant]

REACTIONS (1)
  - Lip swelling [None]
